FAERS Safety Report 23198215 (Version 1)
Quarter: 2023Q4

REPORT INFORMATION
  Report Type: Spontaneous
  Country: US (occurrence: None)
  Receive Date: 20231117
  Receipt Date: 20231117
  Transmission Date: 20240110
  Serious: Yes (Death)
  Sender: FDA-Public Use
  Company Number: None

PATIENT
  Age: 58 Year
  Sex: Female

DRUGS (2)
  1. ENOXAPARIN [Suspect]
     Active Substance: ENOXAPARIN
     Dosage: FREQUENCY : TWICE A DAY;?
  2. ASPIRIN [Suspect]
     Active Substance: ASPIRIN
     Dosage: FREQUENCY : DAILY;?

REACTIONS (6)
  - Brachiocephalic vein thrombosis [None]
  - Respiratory failure [None]
  - Cardio-respiratory arrest [None]
  - Bronchial haemorrhage [None]
  - Cardiomyopathy [None]
  - Pulmonary alveolar haemorrhage [None]

NARRATIVE: CASE EVENT DATE: 20230808
